FAERS Safety Report 18364688 (Version 1)
Quarter: 2020Q4

REPORT INFORMATION
  Report Type: Spontaneous
  Country: US (occurrence: US)
  Receive Date: 20201009
  Receipt Date: 20201009
  Transmission Date: 20210114
  Serious: Yes (Life-Threatening, Hospitalization, Other)
  Sender: FDA-Public Use
  Company Number: US-SHILPA MEDICARE LIMITED-SML-US-2020-00428

PATIENT
  Age: 26 Year
  Sex: Female

DRUGS (4)
  1. IRINOTECAN, UNKNOWN [Suspect]
     Active Substance: IRINOTECAN
     Indication: METASTASES TO LUNG
  2. IRINOTECAN, UNKNOWN [Suspect]
     Active Substance: IRINOTECAN
     Indication: EWING-LIKE SARCOMA
     Route: 065
  3. TEMOZOLOMIDE. [Concomitant]
     Active Substance: TEMOZOLOMIDE
     Indication: EWING-LIKE SARCOMA
     Route: 065
  4. TEMOZOLOMIDE. [Concomitant]
     Active Substance: TEMOZOLOMIDE
     Indication: METASTASES TO LUNG

REACTIONS (7)
  - Bradycardia [Recovered/Resolved]
  - Hypotension [Recovered/Resolved]
  - Dehydration [Unknown]
  - Cardiotoxicity [Recovered/Resolved]
  - Vomiting [Unknown]
  - Fluid intake reduced [Unknown]
  - Sinus arrest [Recovered/Resolved]
